FAERS Safety Report 6983445-5 (Version None)
Quarter: 2010Q3

REPORT INFORMATION
  Report Type: 
  Country: None (occurrence: None)
  Receive Date: 20100914
  Receipt Date: 20080707
  Transmission Date: 20110219
  Serious: No
  Sender: FDA-Public Use
  Company Number: US-WYE-H04434108

PATIENT
  Age: 82 Year
  Sex: Female
  Weight: 68.1 kg

DRUGS (2)
  1. ADVIL LIQUI-GELS [Suspect]
     Indication: PAIN
     Dosage: 2 GEL CAPLETS TWICE
     Route: 048
     Dates: start: 20080609, end: 20080610
  2. AMARYL [Concomitant]

REACTIONS (2)
  - DRUG ADMINISTRATION ERROR [None]
  - DRUG EFFECT DECREASED [None]
